FAERS Safety Report 5718350-5 (Version None)
Quarter: 2008Q2

REPORT INFORMATION
  Report Type: 
  Country: None (occurrence: None)
  Receive Date: 20080425
  Receipt Date: 20070412
  Transmission Date: 20081010
  Serious: No
  Sender: FDA-Public Use
  Company Number: A0647505A

PATIENT
  Age: 50 Year
  Sex: Female

DRUGS (1)
  1. DEXEDRINE [Suspect]
     Dosage: 15MG UNKNOWN
     Route: 065

REACTIONS (1)
  - DRUG INEFFECTIVE [None]
